APPROVED DRUG PRODUCT: ALLOPURINOL
Active Ingredient: ALLOPURINOL
Strength: 300MG
Dosage Form/Route: TABLET;ORAL
Application: A075798 | Product #002 | TE Code: AB
Applicant: PH HEALTH LTD
Approved: Jun 27, 2003 | RLD: No | RS: No | Type: RX